FAERS Safety Report 5726566-7 (Version None)
Quarter: 2008Q2

REPORT INFORMATION
  Report Type: 
  Country: None (occurrence: None)
  Receive Date: 20080502
  Receipt Date: 20080428
  Transmission Date: 20081010
  Serious: Yes (Hospitalization)
  Sender: FDA-Public Use
  Company Number: BR-ROCHE-559370

PATIENT
  Age: 4 Year
  Sex: Male
  Weight: 16 kg

DRUGS (3)
  1. RIVOTRIL [Suspect]
     Indication: TREMOR
     Dosage: THERAPY START AND STOP DATE:2008(MEDICATION ERROR)
     Route: 048
  2. RIVOTRIL [Suspect]
     Route: 048
     Dates: start: 20080301, end: 20080415
  3. GARDENAL [Concomitant]
     Indication: EPILEPSY

REACTIONS (3)
  - COMA [None]
  - MEDICATION ERROR [None]
  - SOMNOLENCE [None]
